APPROVED DRUG PRODUCT: TAFLUPROST
Active Ingredient: TAFLUPROST
Strength: 0.0015%
Dosage Form/Route: SOLUTION/DROPS;OPHTHALMIC
Application: A218002 | Product #001 | TE Code: AT
Applicant: INGENUS PHARMACEUTICALS LLC
Approved: Apr 5, 2024 | RLD: No | RS: No | Type: RX